FAERS Safety Report 12875973 (Version 1)
Quarter: 2016Q4

REPORT INFORMATION
  Report Type: Spontaneous
  Country: US (occurrence: US)
  Receive Date: 20161020
  Receipt Date: 20161020
  Transmission Date: 20170207
  Serious: No
  Sender: FDA-Public Use
  Company Number: None

PATIENT
  Sex: Female

DRUGS (1)
  1. HUMIRA [Suspect]
     Active Substance: ADALIMUMAB
     Indication: COLITIS ULCERATIVE
     Dosage: HUMIRA 40MG Q14 DAYS - SUBCUTANEOUSLY
     Route: 058
     Dates: start: 20140909

REACTIONS (3)
  - Alopecia [None]
  - Neoplasm [None]
  - Confusional state [None]
